FAERS Safety Report 18489550 (Version 1)
Quarter: 2020Q4

REPORT INFORMATION
  Report Type: Other
  Country: GB (occurrence: GB)
  Receive Date: 20201111
  Receipt Date: 20201111
  Transmission Date: 20210114
  Serious: Yes (Other)
  Sender: FDA-Public Use
  Company Number: GB-STRIDES ARCOLAB LIMITED-2020SP013688

PATIENT
  Age: 31 Year
  Sex: Female
  Weight: 67 kg

DRUGS (2)
  1. IBUPROFEN. [Suspect]
     Active Substance: IBUPROFEN
     Dosage: 4 DOSAGE FORM PER DAY
     Route: 048
     Dates: start: 20201012, end: 20201015
  2. IBUPROFEN. [Suspect]
     Active Substance: IBUPROFEN
     Indication: CYSTITIS
     Dosage: UNK
     Route: 065

REACTIONS (2)
  - Pain in extremity [Recovered/Resolved]
  - Contusion [Recovered/Resolved]

NARRATIVE: CASE EVENT DATE: 20201015
